FAERS Safety Report 7997733-7 (Version None)
Quarter: 2011Q4

REPORT INFORMATION
  Report Type: 
  Country: None (occurrence: None)
  Receive Date: 20111221
  Receipt Date: 20111206
  Transmission Date: 20120403
  Serious: Yes (Other)
  Sender: FDA-Public Use
  Company Number: JP-ROCHE-1014794

PATIENT
  Age: 85 Year
  Sex: Male

DRUGS (12)
  1. GRTPA [Suspect]
     Indication: CEREBRAL INFARCTION
     Route: 042
     Dates: start: 20111112, end: 20111113
  2. FAMOTIDINE [Suspect]
     Indication: PRODUCT USED FOR UNKNOWN INDICATION
     Route: 042
  3. WARFARIN POTASSIUM [Concomitant]
     Dosage: AFTER SUPPER
     Route: 048
  4. CARVEDILOL [Concomitant]
     Route: 048
     Dates: end: 20111113
  5. VERAPAMIL HCL [Concomitant]
     Route: 042
     Dates: start: 20111112, end: 20111113
  6. ADVAIR DISKUS 100/50 [Concomitant]
     Route: 051
  7. PRIMPERAN (JAPAN) [Concomitant]
     Route: 042
     Dates: start: 20111112, end: 20111112
  8. ALDACTONE [Concomitant]
     Route: 048
     Dates: end: 20111113
  9. LANIRAPID [Concomitant]
     Route: 048
  10. ATARAX [Concomitant]
     Route: 042
     Dates: start: 20111113, end: 20111113
  11. RADICUT [Suspect]
     Indication: GASTRIC ULCER
     Route: 041
     Dates: start: 20111112, end: 20111112
  12. WARFARIN POTASSIUM [Concomitant]
     Route: 048
     Dates: start: 20110801

REACTIONS (2)
  - RENAL DISORDER [None]
  - LIVER DISORDER [None]
